FAERS Safety Report 19234314 (Version 1)
Quarter: 2021Q2

REPORT INFORMATION
  Report Type: Report from Study
  Country: DE (occurrence: DE)
  Receive Date: 20210508
  Receipt Date: 20210508
  Transmission Date: 20210717
  Serious: Yes (Other)
  Sender: FDA-Public Use
  Company Number: DE-TAKEDA-2021TUS028033

PATIENT
  Age: 6 Year
  Sex: Male

DRUGS (6)
  1. ADVATE [Suspect]
     Active Substance: ANTIHEMOPHILIC FACTOR, HUMAN RECOMBINANT
     Indication: PROPHYLAXIS
     Dosage: 750 INTERNATIONAL UNIT, EVERY 2 DAYS
     Route: 042
     Dates: start: 20150831, end: 20200505
  2. ADVATE [Suspect]
     Active Substance: ANTIHEMOPHILIC FACTOR, HUMAN RECOMBINANT
     Dosage: 750 INTERNATIONAL UNIT, EVERY 2 DAYS
     Route: 042
     Dates: start: 20150831, end: 20200505
  3. ADVATE [Suspect]
     Active Substance: ANTIHEMOPHILIC FACTOR, HUMAN RECOMBINANT
     Dosage: 750 INTERNATIONAL UNIT, EVERY 2 DAYS
     Route: 042
     Dates: start: 20150831, end: 20200505
  4. ADVATE [Suspect]
     Active Substance: ANTIHEMOPHILIC FACTOR, HUMAN RECOMBINANT
     Indication: PROPHYLAXIS
     Dosage: 750 INTERNATIONAL UNIT, EVERY 2 DAYS
     Route: 042
     Dates: start: 20150831, end: 20200505
  5. ADVATE [Suspect]
     Active Substance: ANTIHEMOPHILIC FACTOR, HUMAN RECOMBINANT
     Indication: PROPHYLAXIS
     Dosage: 750 INTERNATIONAL UNIT, EVERY 2 DAYS
     Route: 042
     Dates: start: 20150831, end: 20200505
  6. ADVATE [Suspect]
     Active Substance: ANTIHEMOPHILIC FACTOR, HUMAN RECOMBINANT
     Dosage: 750 INTERNATIONAL UNIT, EVERY 2 DAYS
     Route: 042
     Dates: start: 20150831, end: 20200505

REACTIONS (1)
  - Contusion [Recovered/Resolved]

NARRATIVE: CASE EVENT DATE: 20200506
